FAERS Safety Report 11870491 (Version 1)
Quarter: 2015Q4

REPORT INFORMATION
  Report Type: Spontaneous
  Country: US (occurrence: US)
  Receive Date: 20151228
  Receipt Date: 20151228
  Transmission Date: 20160305
  Serious: No
  Sender: FDA-Public Use
  Company Number: US-SA-2015SA055455

PATIENT
  Sex: Male
  Weight: 68.03 kg

DRUGS (1)
  1. PLAVIX [Suspect]
     Active Substance: CLOPIDOGREL BISULFATE
     Indication: CEREBROVASCULAR ACCIDENT
     Route: 065
     Dates: start: 2012, end: 2014

REACTIONS (2)
  - Coagulopathy [Not Recovered/Not Resolved]
  - Skin discolouration [Not Recovered/Not Resolved]
